FAERS Safety Report 11839338 (Version 1)
Quarter: 2015Q4

REPORT INFORMATION
  Report Type: Spontaneous
  Country: GB (occurrence: GB)
  Receive Date: 20151216
  Receipt Date: 20151216
  Transmission Date: 20160305
  Serious: Yes (Other)
  Sender: FDA-Public Use
  Company Number: GB-ACCORD-036173

PATIENT
  Sex: Female

DRUGS (8)
  1. FLUOROURACIL. [Concomitant]
     Active Substance: FLUOROURACIL
  2. EPIRUBICIN [Concomitant]
     Active Substance: EPIRUBICIN
  3. CAPECITABINE. [Suspect]
     Active Substance: CAPECITABINE
     Indication: BREAST NEOPLASM
     Route: 065
  4. HERCEPTIN [Concomitant]
     Active Substance: TRASTUZUMAB
     Route: 065
  5. LAPATINIB/LAPATINIB DITOSYLATE [Concomitant]
  6. KADCYLA [Suspect]
     Active Substance: ADO-TRASTUZUMAB EMTANSINE
     Indication: BREAST NEOPLASM
     Route: 065
  7. CYCLOPHOSPHAMIDE/CYCLOPHOSPHAMIDE MONOHYDRATE [Concomitant]
  8. DOCETAXEL. [Concomitant]
     Active Substance: DOCETAXEL

REACTIONS (1)
  - Disease progression [Unknown]
